FAERS Safety Report 16416146 (Version 3)
Quarter: 2019Q4

REPORT INFORMATION
  Report Type: Spontaneous
  Country: JP (occurrence: JP)
  Receive Date: 20190611
  Receipt Date: 20191001
  Transmission Date: 20200122
  Serious: Yes (Death, Other)
  Sender: FDA-Public Use
  Company Number: JP-PFIZER INC-2019206562

PATIENT
  Age: 68 Year
  Sex: Male
  Weight: 57 kg

DRUGS (2)
  1. SUTENT [Suspect]
     Active Substance: SUNITINIB MALATE
     Indication: PANCREATIC NEUROENDOCRINE TUMOUR
     Dosage: 37.5 MG, DAILY
     Route: 048
     Dates: start: 20190402, end: 20190501
  2. VEGIN [Concomitant]
     Indication: PROPHYLAXIS
     Dosage: APPROPRIATE DOSE, 1X/DAY
     Dates: start: 20190402

REACTIONS (9)
  - Malaise [Not Recovered/Not Resolved]
  - Decreased appetite [Not Recovered/Not Resolved]
  - Neoplasm progression [Fatal]
  - Anaemia [Recovering/Resolving]
  - Ascites [Unknown]
  - Pleural effusion [Unknown]
  - Erythema [Unknown]
  - Joint injury [Not Recovered/Not Resolved]
  - Rash [Recovering/Resolving]

NARRATIVE: CASE EVENT DATE: 20190415
